FAERS Safety Report 7618017-2 (Version None)
Quarter: 2011Q3

REPORT INFORMATION
  Report Type: 
  Country: None (occurrence: None)
  Receive Date: 20110718
  Receipt Date: 20110712
  Transmission Date: 20111222
  Serious: Yes (Life-Threatening, Hospitalization, Other)
  Sender: FDA-Public Use
  Company Number: PHHY2011DE63052

PATIENT
  Sex: Female

DRUGS (16)
  1. CLOZAPINE [Suspect]
     Dosage: 12.5 MG
     Route: 048
     Dates: start: 20101001, end: 20101201
  2. QUILONIUM-R [Concomitant]
     Dosage: UPDOSING FROM 225 MG/D UPTO 675 MG/D
     Route: 048
     Dates: start: 20101216, end: 20110119
  3. METOPROLOL TARTRATE [Concomitant]
  4. CLOZAPINE [Suspect]
     Dosage: 400 MG
     Route: 048
  5. CLOZAPINE [Suspect]
     Dosage: 400 MG, UNK
     Route: 048
     Dates: start: 20110113, end: 20110329
  6. QUILONIUM-R [Concomitant]
     Dosage: 900 MG, UNK
     Route: 048
     Dates: start: 20110102, end: 20110329
  7. ENOXAPARIN SODIUM [Concomitant]
     Dosage: 1 DF, UNK
     Route: 058
  8. STEROFUNDIN [Concomitant]
     Dosage: 1 DF, QD
     Route: 042
  9. QUILONIUM-R [Concomitant]
     Dosage: 1 DF, BID
     Route: 048
     Dates: start: 20110329
  10. INSULIN [Concomitant]
  11. CLOZAPINE [Suspect]
     Dosage: 400 MG, UNK
     Route: 048
     Dates: start: 20110104, end: 20110112
  12. QUILONIUM-R [Concomitant]
     Dosage: 0.5 DF, UNK
     Route: 048
  13. PANTOPRAZOLE [Concomitant]
     Dosage: 1 DF, QD
  14. DEQUALINIUM [Concomitant]
  15. CLOZAPINE [Suspect]
     Dosage: 700 MG, DAILY
     Route: 048
     Dates: start: 20101217, end: 20110103
  16. CLOZAPINE [Suspect]
     Dosage: 650 MG DAILY

REACTIONS (42)
  - MAJOR DEPRESSION [None]
  - AGRANULOCYTOSIS [None]
  - BODY TEMPERATURE INCREASED [None]
  - DIABETES MELLITUS [None]
  - SINUS TACHYCARDIA [None]
  - HAEMOGLOBIN DECREASED [None]
  - OESOPHAGITIS [None]
  - MYELODYSPLASTIC SYNDROME [None]
  - LEUKOPENIA [None]
  - NAUSEA [None]
  - PYREXIA [None]
  - LYMPHOPENIA [None]
  - C-REACTIVE PROTEIN INCREASED [None]
  - HEART RATE INCREASED [None]
  - ABDOMINAL PAIN [None]
  - TREMOR [None]
  - ERYTHROPOIESIS ABNORMAL [None]
  - PLEURAL EFFUSION [None]
  - INFLAMMATION [None]
  - PNEUMONIA [None]
  - BRADYCARDIA [None]
  - SOMNOLENCE [None]
  - ATAXIA [None]
  - MUCOSAL DRYNESS [None]
  - ANTIPSYCHOTIC DRUG LEVEL ABOVE THERAPEUTIC [None]
  - GASTRIC ULCER [None]
  - HYPERPLASIA [None]
  - DISORIENTATION [None]
  - BONE MARROW DISORDER [None]
  - BLOOD PRESSURE DECREASED [None]
  - OXYGEN SATURATION DECREASED [None]
  - GASTRITIS [None]
  - HIATUS HERNIA [None]
  - COGWHEEL RIGIDITY [None]
  - NEUTROPHILIA [None]
  - ABSCESS [None]
  - DIARRHOEA [None]
  - VOMITING [None]
  - GAIT DISTURBANCE [None]
  - DYSPHAGIA [None]
  - CANDIDIASIS [None]
  - MENTAL DISORDER [None]
